FAERS Safety Report 23754778 (Version 1)
Quarter: 2024Q2

REPORT INFORMATION
  Report Type: Spontaneous
  Country: GB (occurrence: GB)
  Receive Date: 20240418
  Receipt Date: 20240418
  Transmission Date: 20240716
  Serious: Yes (Disabling, Other)
  Sender: FDA-Public Use
  Company Number: None

PATIENT
  Age: 62 Year
  Sex: Male
  Weight: 120 kg

DRUGS (1)
  1. ALLOPURINOL [Suspect]
     Active Substance: ALLOPURINOL
     Indication: Gout
     Dosage: 300MG OD
     Dates: start: 20231102, end: 20240405

REACTIONS (14)
  - Medication error [Unknown]
  - Drug interaction [Not Recovered/Not Resolved]
  - Lethargy [Not Recovered/Not Resolved]
  - Influenza like illness [Not Recovered/Not Resolved]
  - Epistaxis [Not Recovered/Not Resolved]
  - Myalgia [Not Recovered/Not Resolved]
  - Muscle atrophy [Not Recovered/Not Resolved]
  - Pruritus [Not Recovered/Not Resolved]
  - Muscular weakness [Not Recovered/Not Resolved]
  - Chills [Recovering/Resolving]
  - Rash [Recovering/Resolving]
  - Pyrexia [Recovered/Resolved]
  - Hyperglycaemia [Not Recovered/Not Resolved]
  - White blood cell count [Unknown]
